FAERS Safety Report 7519572-3 (Version None)
Quarter: 2011Q2

REPORT INFORMATION
  Report Type: 
  Country: None (occurrence: None)
  Receive Date: 20110524
  Receipt Date: 20110509
  Transmission Date: 20111010
  Serious: Yes (Hospitalization, Other)
  Sender: FDA-Public Use
  Company Number: 11-037

PATIENT
  Age: 4 Day
  Sex: Female

DRUGS (2)
  1. LEVETIRACETAM [Suspect]
     Indication: JUVENILE MYOCLONIC EPILEPSY
     Dosage: 3000 MG;QD
  2. PRIMIDONE [Suspect]
     Indication: JUVENILE MYOCLONIC EPILEPSY
     Dosage: 187.5 MG;QD

REACTIONS (2)
  - MATERNAL DRUGS AFFECTING FOETUS [None]
  - DRUG WITHDRAWAL CONVULSIONS [None]
